FAERS Safety Report 8496188-6 (Version None)
Quarter: 2012Q3

REPORT INFORMATION
  Report Type: 
  Country: None (occurrence: None)
  Receive Date: 20120709
  Receipt Date: 20120705
  Transmission Date: 20120928
  Serious: Yes (Death, Hospitalization)
  Sender: FDA-Public Use
  Company Number: PHHY2012US057759

PATIENT
  Age: 77 Year
  Sex: Female

DRUGS (3)
  1. DIURETICS [Concomitant]
  2. TACROLIMUS [Suspect]
     Dosage: UNK
  3. CYCLOSPORINE [Concomitant]

REACTIONS (8)
  - ORGANISING PNEUMONIA [None]
  - DEHYDRATION [None]
  - ASTHENIA [None]
  - DIARRHOEA [None]
  - CARDIOPULMONARY FAILURE [None]
  - CARDIAC FAILURE CONGESTIVE [None]
  - PNEUMONIA HERPES VIRAL [None]
  - HYPOXIA [None]
